FAERS Safety Report 16439821 (Version 2)
Quarter: 2019Q3

REPORT INFORMATION
  Report Type: Spontaneous
  Country: US (occurrence: US)
  Receive Date: 20190617
  Receipt Date: 20190701
  Transmission Date: 20191004
  Serious: No
  Sender: FDA-Public Use
  Company Number: US-PFIZER INC-2019254245

PATIENT
  Age: 56 Year
  Sex: Female
  Weight: 91 kg

DRUGS (1)
  1. LYRICA [Suspect]
     Active Substance: PREGABALIN
     Indication: MERALGIA PARAESTHETICA
     Dosage: 150 MG, 2X/DAY (TWO CAPSULES IN MORNING AND AGAIN TWO CAPSULES IN AT NIGHT)
     Route: 048
     Dates: start: 201903

REACTIONS (3)
  - Off label use [Unknown]
  - Product use in unapproved indication [Unknown]
  - Feeling abnormal [Unknown]

NARRATIVE: CASE EVENT DATE: 201903
